FAERS Safety Report 13694973 (Version 1)
Quarter: 2017Q2

REPORT INFORMATION
  Report Type: Report from Study
  Country: IL (occurrence: IL)
  Receive Date: 20170627
  Receipt Date: 20170627
  Transmission Date: 20170830
  Serious: Yes (Hospitalization)
  Sender: FDA-Public Use
  Company Number: IL-INCYTE CORPORATION-2017IN002983

PATIENT

DRUGS (2)
  1. JAKAVI [Suspect]
     Active Substance: RUXOLITINIB
     Indication: MYELOFIBROSIS
     Dosage: 25 MG, QD (2 X 5 MG, QD AND 15 MG QD)
     Route: 048
     Dates: start: 201610
  2. JAKAVI [Suspect]
     Active Substance: RUXOLITINIB
     Indication: MYELOFIBROSIS
     Dosage: 30 MG, QD
     Route: 048

REACTIONS (10)
  - Myalgia [Unknown]
  - Oedema [Recovering/Resolving]
  - Hepatomegaly [Not Recovered/Not Resolved]
  - Dysstasia [Unknown]
  - Drug ineffective [Not Recovered/Not Resolved]
  - Swelling face [Unknown]
  - Abdominal distension [Unknown]
  - Abdominal discomfort [Unknown]
  - Weight increased [Unknown]
  - Peripheral swelling [Unknown]
